FAERS Safety Report 8811009 (Version 3)
Quarter: 2012Q4

REPORT INFORMATION
  Report Type: 
  Country: US (occurrence: US)
  Receive Date: 20120927
  Receipt Date: 20121016
  Transmission Date: 20130627
  Serious: Yes (Other)
  Sender: FDA-Public Use
  Company Number: US-AMGEN-USASP2012060328

PATIENT
  Age: 71 Year
  Sex: Female

DRUGS (6)
  1. PROLIA [Suspect]
     Indication: PRODUCT USED FOR UNKNOWN INDICATION
     Dosage: UNK
     Dates: start: 20110907
  2. BYSTOLIC [Concomitant]
     Dosage: 5 mg, UNK
  3. LEVALONE [Concomitant]
     Dosage: 2 mg, UNK
  4. ACIPHEX [Concomitant]
  5. NAMENDA [Concomitant]
     Dosage: 10 mg, UNK
  6. ARICEPT [Concomitant]

REACTIONS (12)
  - Diarrhoea [Unknown]
  - Dehydration [Unknown]
  - Memory impairment [Recovering/Resolving]
  - Paraesthesia [Not Recovered/Not Resolved]
  - Weight decreased [Unknown]
  - Blood pressure increased [Not Recovered/Not Resolved]
  - Dental caries [Unknown]
  - Ear pain [Unknown]
  - Gastrooesophageal reflux disease [Unknown]
  - Pain in extremity [Unknown]
  - Tinnitus [Not Recovered/Not Resolved]
  - Skin disorder [Not Recovered/Not Resolved]
